FAERS Safety Report 10215712 (Version 1)
Quarter: 2014Q2

REPORT INFORMATION
  Report Type: Spontaneous
  Country: US (occurrence: None)
  Receive Date: 20140602
  Receipt Date: 20140602
  Transmission Date: 20141212
  Serious: Yes (Death)
  Sender: FDA-Public Use
  Company Number: INS201405-000079

PATIENT
  Sex: Male
  Weight: 67.13 kg

DRUGS (1)
  1. SUBSYS SUBLINGUAL SPRAY (FENTANYL) [Suspect]
     Indication: PAIN
     Dosage: 600 MCG, AS REQUIRED, EVERY SIX HOURS), SUBLINGUAL
     Route: 060

REACTIONS (1)
  - Renal failure [None]
